FAERS Safety Report 7020782-2 (Version None)
Quarter: 2010Q3

REPORT INFORMATION
  Report Type: 
  Country: None (occurrence: None)
  Receive Date: 20100929
  Receipt Date: 20100917
  Transmission Date: 20110219
  Serious: Yes (Hospitalization)
  Sender: FDA-Public Use
  Company Number: BR-PFIZER INC-2010123060

PATIENT
  Sex: Male

DRUGS (1)
  1. CELEBRA [Suspect]
     Dosage: UNK
     Route: 048

REACTIONS (2)
  - GASTRIC HAEMORRHAGE [None]
  - SHOCK [None]
